FAERS Safety Report 9288359 (Version 3)
Quarter: 2013Q3

REPORT INFORMATION
  Report Type: Spontaneous
  Country: US (occurrence: US)
  Receive Date: 20130514
  Receipt Date: 20130913
  Transmission Date: 20140515
  Serious: Yes (Hospitalization, Other)
  Sender: FDA-Public Use
  Company Number: US-009507513-1305USA005486

PATIENT
  Sex: Female
  Weight: 72.56 kg

DRUGS (5)
  1. NUVARING [Suspect]
     Indication: CONTRACEPTION
     Dosage: UNK
     Route: 067
     Dates: start: 20100527, end: 20110529
  2. LEVOXYL [Concomitant]
     Indication: HYPOTHYROIDISM
     Dosage: 100 MICROGRAM, QD
     Dates: start: 1998
  3. INDOMETHACIN ER [Concomitant]
     Indication: HEADACHE
     Dosage: 75 MG, QD
     Dates: start: 2007
  4. AMBIEN [Concomitant]
     Indication: INSOMNIA
     Dosage: 10 MG, QD
     Dates: start: 2003
  5. WELLBUTRIN XL [Concomitant]
     Indication: ANXIETY
     Dosage: 150 MG, QD
     Dates: start: 2006

REACTIONS (19)
  - Thrombectomy [Unknown]
  - Pulmonary embolism [Unknown]
  - Deep vein thrombosis [Unknown]
  - Vena cava filter insertion [Unknown]
  - Lip injury [Unknown]
  - Gingival injury [Unknown]
  - Tooth fracture [Unknown]
  - Phlebitis [Unknown]
  - Transfusion [Unknown]
  - Upper gastrointestinal haemorrhage [Unknown]
  - Iron deficiency anaemia [Unknown]
  - Fall [Unknown]
  - Haemorrhagic anaemia [Unknown]
  - Adverse drug reaction [Unknown]
  - Swelling face [Unknown]
  - Syncope [Unknown]
  - Tooth disorder [Unknown]
  - Cardiac failure [Unknown]
  - Drug hypersensitivity [Unknown]
